FAERS Safety Report 5940782-0 (Version None)
Quarter: 2008Q4

REPORT INFORMATION
  Report Type: 
  Country: None (occurrence: None)
  Receive Date: 20081104
  Receipt Date: 20080828
  Transmission Date: 20090506
  Serious: No
  Sender: FDA-Public Use
  Company Number: SE-JNJFOC-20080805218

PATIENT
  Age: 35 Year
  Sex: Male
  Weight: 99 kg

DRUGS (1)
  1. RISPERDAL CONSTA [Suspect]
     Indication: SCHIZOPHRENIA
     Route: 030

REACTIONS (1)
  - BLOOD THYROID STIMULATING HORMONE INCREASED [None]
